FAERS Safety Report 15359280 (Version 3)
Quarter: 2018Q3

REPORT INFORMATION
  Report Type: Spontaneous
  Country: FR (occurrence: FR)
  Receive Date: 20180907
  Receipt Date: 20180921
  Transmission Date: 20181010
  Serious: Yes (Life-Threatening, Hospitalization, Other)
  Sender: FDA-Public Use
  Company Number: FR-AUROBINDO-AUR-APL-2018-043532

PATIENT
  Age: 57 Year
  Sex: Female

DRUGS (13)
  1. CYAMEMAZINE [Suspect]
     Active Substance: CYAMEMAZINE
     Indication: SCHIZOAFFECTIVE DISORDER
     Dosage: 50 MG TO 100 MG DAILY
     Route: 065
  2. LERCANIDIPINE FILM?COATED [Suspect]
     Active Substance: LERCANIDIPINE
     Indication: HYPERTENSION
  3. LERCANIDIPINE FILM?COATED [Suspect]
     Active Substance: LERCANIDIPINE
     Indication: SUICIDE ATTEMPT
     Dosage: 300 MILLIGRAM, TOTAL
     Route: 065
  4. ZUCLOPENTHIXOL ACETATE [Suspect]
     Active Substance: ZUCLOPENTHIXOL ACETATE
     Indication: PRODUCT USED FOR UNKNOWN INDICATION
     Dosage: 100 MILLIGRAM
     Route: 065
  5. BISOPROLOL [Concomitant]
     Active Substance: BISOPROLOL
     Indication: PRODUCT USED FOR UNKNOWN INDICATION
     Dosage: UNK
     Route: 065
  6. CYAMEMAZINE [Suspect]
     Active Substance: CYAMEMAZINE
     Indication: SUICIDAL IDEATION
     Dosage: 50 MILLIGRAM, ONCE A DAY
  7. ESCITALOPRAM [Suspect]
     Active Substance: ESCITALOPRAM OXALATE
     Indication: DEPRESSIVE SYMPTOM
     Dosage: 10 MILLIGRAM, ONCE A DAY
     Route: 065
  8. CYAMEMAZINE [Suspect]
     Active Substance: CYAMEMAZINE
     Indication: SUICIDE ATTEMPT
     Dosage: 25 MG TO 75 MG DAILY
     Route: 065
  9. ATORVASTATIN [Concomitant]
     Active Substance: ATORVASTATIN
     Indication: PRODUCT USED FOR UNKNOWN INDICATION
     Dosage: UNK
     Route: 065
  10. ZUCLOPENTHIXOL HYDROCHLORIDE [Suspect]
     Active Substance: ZUCLOPENTHIXOL HYDROCHLORIDE
     Indication: SCHIZOAFFECTIVE DISORDER
     Dosage: TITRATED FROM 5 TO 40MG DAILY OVER 2 WEEKS
     Route: 065
  11. CYAMEMAZINE [Suspect]
     Active Substance: CYAMEMAZINE
     Dosage: 750 MG, TOTAL
  12. METFORMIN [Concomitant]
     Active Substance: METFORMIN HYDROCHLORIDE
     Indication: TYPE 2 DIABETES MELLITUS
     Dosage: UNK
     Route: 065
  13. ZUCLOPENTHIXOL DECANOATE [Suspect]
     Active Substance: ZUCLOPENTHIXOL DECANOATE
     Indication: SCHIZOAFFECTIVE DISORDER
     Dosage: 300 MILLIGRAM
     Route: 065

REACTIONS (13)
  - Vasoplegia syndrome [Recovered/Resolved]
  - Anxiety [Unknown]
  - Intentional overdose [Unknown]
  - Drug administration error [Unknown]
  - Psychomotor hyperactivity [Unknown]
  - Suicide attempt [Unknown]
  - Neuroleptic malignant syndrome [Recovered/Resolved]
  - Dehydration [Unknown]
  - Accidental overdose [Unknown]
  - Depression [Unknown]
  - Drug interaction [Unknown]
  - Drug level increased [Unknown]
  - Intentional product misuse [Unknown]
